FAERS Safety Report 21254388 (Version 3)
Quarter: 2023Q2

REPORT INFORMATION
  Report Type: Spontaneous
  Country: DE (occurrence: DE)
  Receive Date: 20220825
  Receipt Date: 20230523
  Transmission Date: 20230722
  Serious: Yes (Other)
  Sender: FDA-Public Use
  Company Number: DE-PFIZER INC-PV202200038650

PATIENT
  Age: 13 Day
  Sex: Female

DRUGS (2)
  1. SIROLIMUS [Interacting]
     Active Substance: SIROLIMUS
     Indication: Tuberous sclerosis complex
     Dosage: 0.4 MG/M2/DOSE, 2X/DAY
  2. AMIODARONE [Interacting]
     Active Substance: AMIODARONE
     Indication: Tuberous sclerosis complex
     Dosage: UNK (CONTINUOUS INFUSION)

REACTIONS (6)
  - Drug interaction [Unknown]
  - Toxicity to various agents [Unknown]
  - Immunosuppressant drug level increased [Unknown]
  - Off label use [Unknown]
  - Off label use [Unknown]
  - Drug effective for unapproved indication [Unknown]
